FAERS Safety Report 20649831 (Version 1)
Quarter: 2022Q1

REPORT INFORMATION
  Report Type: Spontaneous
  Country: US (occurrence: None)
  Receive Date: 20220329
  Receipt Date: 20220329
  Transmission Date: 20220423
  Serious: Yes (Hospitalization)
  Sender: FDA-Public Use
  Company Number: None

PATIENT
  Age: 53 Year
  Sex: Female

DRUGS (1)
  1. CAPECITABINE [Suspect]
     Active Substance: CAPECITABINE
     Dosage: 2300MG BID ORAL
     Route: 048
     Dates: start: 202202

REACTIONS (8)
  - Diarrhoea [None]
  - Dehydration [None]
  - Dry eye [None]
  - Dyspepsia [None]
  - Oral discomfort [None]
  - Therapy interrupted [None]
  - Burning sensation [None]
  - Burning sensation [None]

NARRATIVE: CASE EVENT DATE: 20220315
